FAERS Safety Report 6213662-3 (Version None)
Quarter: 2009Q2

REPORT INFORMATION
  Report Type: 
  Country: None (occurrence: None)
  Receive Date: 20090601
  Receipt Date: 20090514
  Transmission Date: 20091009
  Serious: Yes (Hospitalization)
  Sender: FDA-Public Use
  Company Number: 8046465

PATIENT
  Age: 58 Year
  Sex: Male
  Weight: 66 kg

DRUGS (7)
  1. CERTOLIZUMAB PEGOL [Suspect]
     Indication: RHEUMATOID ARTHRITIS
     Dosage: 1/2W
     Dates: start: 20090205
  2. PLACEBO [Suspect]
     Indication: RHEUMATOID ARTHRITIS
     Dosage: 1/2W
     Dates: start: 20090205
  3. PREDNISOLONE [Concomitant]
  4. SALAZOSULFAPYRIDINE [Concomitant]
  5. ROXATIDINE ACETATE HCL [Concomitant]
  6. LOXOPROFEN SODIUM [Concomitant]
  7. KETOPROFEN [Concomitant]

REACTIONS (2)
  - HERPES ZOSTER [None]
  - IMMUNE SYSTEM DISORDER [None]
